FAERS Safety Report 5838763-0 (Version None)
Quarter: 2008Q3

REPORT INFORMATION
  Report Type: 
  Country: None (occurrence: None)
  Receive Date: 20080808
  Receipt Date: 20080802
  Transmission Date: 20090109
  Serious: Yes (Other)
  Sender: FDA-Public Use
  Company Number: IT-BRISTOL-MYERS SQUIBB COMPANY-14281687

PATIENT
  Age: 38 Year
  Sex: Female

DRUGS (1)
  1. KENACORT [Suspect]
     Indication: BACK PAIN
     Dosage: LOT NO.8D34008 EXPIRING DATE 02/2011
     Route: 030
     Dates: start: 20080707, end: 20080707

REACTIONS (2)
  - CELLULITIS [None]
  - TRANSMISSION OF AN INFECTIOUS AGENT VIA A MEDICINAL PRODUCT [None]
